FAERS Safety Report 4601328-2 (Version None)
Quarter: 2005Q1

REPORT INFORMATION
  Report Type: 
  Country: None (occurrence: None)
  Receive Date: 20050202
  Receipt Date: 20040820
  Transmission Date: 20050727
  Serious: Yes (Other)
  Sender: FDA-Public Use
  Company Number: 20034886-C617951-1B

PATIENT
  Age: 31 Year
  Sex: Male
  Weight: 83.0083 kg

DRUGS (1)
  1. SODIUM CHLORIDE 0.9% [Suspect]
     Indication: PLASMAPHERESIS
     Dosage: IV

REACTIONS (12)
  - CHEST DISCOMFORT [None]
  - COUGH [None]
  - DYSPNOEA [None]
  - ERUCTATION [None]
  - ERYTHEMA [None]
  - FATIGUE [None]
  - FEELING HOT [None]
  - FLUSHING [None]
  - HYPOAESTHESIA ORAL [None]
  - NAUSEA [None]
  - PARAESTHESIA ORAL [None]
  - URTICARIA [None]
